FAERS Safety Report 7307959-3 (Version None)
Quarter: 2011Q1

REPORT INFORMATION
  Report Type: 
  Country: None (occurrence: None)
  Receive Date: 20110223
  Receipt Date: 20110208
  Transmission Date: 20110831
  Serious: Yes (Hospitalization)
  Sender: FDA-Public Use
  Company Number: US-ASTRAZENECA-2010SE53350

PATIENT
  Age: 30805 Day
  Sex: Male
  Weight: 90.7 kg

DRUGS (20)
  1. METHOTREXATE [Suspect]
     Dosage: 10 MG ON FRIDAY NIGHTS
     Route: 048
  2. SEROQUEL XR [Suspect]
     Indication: DEMENTIA
     Route: 048
  3. SEROQUEL XR [Suspect]
     Route: 048
  4. K-DUR [Concomitant]
     Indication: BLOOD POTASSIUM ABNORMAL
  5. SPIRONOLACTONE [Concomitant]
     Indication: FLUID RETENTION
  6. SEROQUEL XR [Suspect]
     Indication: AGGRESSION
     Route: 048
  7. DIGOXIN [Concomitant]
     Indication: CARDIAC DISORDER
  8. LASIX [Concomitant]
  9. SEROQUEL XR [Suspect]
     Route: 048
  10. CELEXA [Concomitant]
     Indication: DEMENTIA ALZHEIMER'S TYPE
  11. LASIX [Concomitant]
     Indication: PLEURAL EFFUSION
  12. METHOTREXATE [Suspect]
     Indication: RHEUMATOID ARTHRITIS
  13. FLUOXETINE [Concomitant]
     Indication: PRODUCT USED FOR UNKNOWN INDICATION
     Dosage: 0.21 TWO TIMES A DAY
  14. SEROQUEL XR [Suspect]
     Indication: DEMENTIA ALZHEIMER'S TYPE
     Route: 048
  15. SEROQUEL XR [Suspect]
     Route: 048
  16. FLORINEF [Concomitant]
  17. FOLIC ACID [Concomitant]
     Indication: PROPHYLAXIS
  18. ARICEPT [Concomitant]
     Indication: DEMENTIA ALZHEIMER'S TYPE
  19. B-12 SHOT ONCE MONTHLY [Concomitant]
     Indication: ASTHENIA
  20. ALDACTONE [Concomitant]

REACTIONS (9)
  - CARDIAC FAILURE CONGESTIVE [None]
  - CONTUSION [None]
  - THROMBOSIS [None]
  - SKIN ULCER [None]
  - JOINT SPRAIN [None]
  - PANCYTOPENIA [None]
  - FALL [None]
  - RENAL FAILURE [None]
  - ASTHENIA [None]
